FAERS Safety Report 25460700 (Version 3)
Quarter: 2025Q4

REPORT INFORMATION
  Report Type: Spontaneous
  Country: JP (occurrence: JP)
  Receive Date: 20250620
  Receipt Date: 20251119
  Transmission Date: 20260117
  Serious: Yes (Hospitalization)
  Sender: DAIICHI
  Company Number: JP-DSJP-DS-2025-138026-JP

PATIENT
  Age: 82 Year
  Sex: Female

DRUGS (2)
  1. DATROWAY [Suspect]
     Active Substance: DATOPOTAMAB DERUXTECAN-DLNK
     Indication: Hormone receptor positive HER2 negative breast cancer
     Dosage: 3 MG/KG, ONCE EVERY 3 WK
     Route: 065
     Dates: start: 20250416, end: 20251002
  2. DATROWAY [Suspect]
     Active Substance: DATOPOTAMAB DERUXTECAN-DLNK
     Dosage: 4 MG/KG, ONCE EVERY 3 WK
     Route: 065
     Dates: start: 20251113

REACTIONS (20)
  - Catheter site infection [Recovered/Resolved]
  - Fall [Unknown]
  - Pelvic fracture [Unknown]
  - Pyrexia [Unknown]
  - Glossodynia [Unknown]
  - Somnolence [Unknown]
  - Myalgia [Unknown]
  - Faeces soft [Unknown]
  - Alopecia [Unknown]
  - Chest discomfort [Unknown]
  - Breast pain [Unknown]
  - Oedema peripheral [Unknown]
  - Hypoaesthesia [Unknown]
  - Breast haemorrhage [Unknown]
  - Dry skin [Unknown]
  - Decreased appetite [Unknown]
  - Malaise [Unknown]
  - Constipation [Unknown]
  - Product use issue [Unknown]
  - Disease progression [Unknown]

NARRATIVE: CASE EVENT DATE: 20250101
